FAERS Safety Report 13355102 (Version 1)
Quarter: 2017Q1

REPORT INFORMATION
  Report Type: Spontaneous
  Country: US (occurrence: US)
  Receive Date: 20170321
  Receipt Date: 20170321
  Transmission Date: 20170429
  Serious: No
  Sender: FDA-Public Use
  Company Number: US-BAYER-2017-053293

PATIENT
  Age: 74 Year
  Sex: Female
  Weight: 74.97 kg

DRUGS (1)
  1. MIRALAX [Suspect]
     Active Substance: POLYETHYLENE GLYCOL 3350
     Indication: GASTROINTESTINAL DISORDER
     Dosage: 1 DF, ONCE
     Route: 048
     Dates: start: 20170316, end: 20170316

REACTIONS (2)
  - Swelling [Recovered/Resolved with Sequelae]
  - Pruritus [Recovered/Resolved]

NARRATIVE: CASE EVENT DATE: 20170316
